FAERS Safety Report 23067521 (Version 1)
Quarter: 2023Q4

REPORT INFORMATION
  Report Type: Spontaneous
  Country: FR (occurrence: FR)
  Receive Date: 20231016
  Receipt Date: 20231016
  Transmission Date: 20240109
  Serious: Yes (Other)
  Sender: FDA-Public Use
  Company Number: None

PATIENT
  Age: 82 Year
  Sex: Male

DRUGS (2)
  1. ERLEADA [Suspect]
     Active Substance: APALUTAMIDE
     Indication: Prostate cancer recurrent
     Route: 048
     Dates: start: 20230414, end: 20230901
  2. GONADORELIN [Concomitant]
     Active Substance: GONADORELIN

REACTIONS (1)
  - Lichenoid keratosis [Recovering/Resolving]

NARRATIVE: CASE EVENT DATE: 20230701
